FAERS Safety Report 5848395-6 (Version None)
Quarter: 2008Q3

REPORT INFORMATION
  Report Type: 
  Country: None (occurrence: None)
  Receive Date: 20080815
  Receipt Date: 20080815
  Transmission Date: 20090109
  Serious: No
  Sender: FDA-Public Use
  Company Number: None

PATIENT
  Sex: Male
  Weight: 67.1324 kg

DRUGS (2)
  1. MORPHINE SULFATE ER 60MG ETHEX [Suspect]
     Indication: SPONDYLOLISTHESIS
     Dosage: 1 TABLET 12 HOURS PO
     Route: 048
     Dates: start: 20080303, end: 20080615
  2. MORPHINE SULFATE ER 60MG ETHEX [Suspect]
     Indication: SPONDYLOLISTHESIS
     Dosage: 1 TABLET 12 HOURS PO
     Route: 048
     Dates: start: 20080416, end: 20080615

REACTIONS (3)
  - ANXIETY [None]
  - DYSPNOEA [None]
  - HEADACHE [None]
